APPROVED DRUG PRODUCT: BENZTROPINE MESYLATE
Active Ingredient: BENZTROPINE MESYLATE
Strength: 2MG
Dosage Form/Route: TABLET;ORAL
Application: A089060 | Product #001 | TE Code: AA
Applicant: PLIVA INC
Approved: Aug 10, 1988 | RLD: No | RS: No | Type: RX